FAERS Safety Report 7499606-5 (Version None)
Quarter: 2011Q2

REPORT INFORMATION
  Report Type: 
  Country: None (occurrence: None)
  Receive Date: 20110506
  Receipt Date: 20110428
  Transmission Date: 20111010
  Serious: Yes (Death)
  Sender: FDA-Public Use
  Company Number: P0566

PATIENT
  Age: 89 Year
  Sex: Male
  Weight: 85.2 kg

DRUGS (11)
  1. APC8015/5000/2000 (INFUSION) [Suspect]
     Indication: PROSTATE CANCER METASTATIC
     Dosage: INTRAVENOUS ; INTRAVENOUS
     Route: 042
     Dates: start: 20110401, end: 20110401
  2. APC8015/5000/2000 (INFUSION) [Suspect]
     Indication: PROSTATE CANCER METASTATIC
     Dosage: INTRAVENOUS ; INTRAVENOUS
     Route: 042
     Dates: start: 20110319, end: 20110319
  3. LUPRON [Concomitant]
  4. MICARDIS HCT (HYDROCHLOROTHIAZIDE, TELMISARTAN) (TABLETS) [Concomitant]
  5. LIPITOR [Concomitant]
  6. CALCIUM PLUS VITAMIN D (COLECALCIFEROL, CALCIUM) (CAPSULES) [Concomitant]
  7. CELEXA [Concomitant]
  8. NITROGLYCERINE (GLYCERYL TRINITRATE) (POULTICE OR PATCH) [Concomitant]
  9. ASPIRIN (ACETYLSALICYLIC ACETATE) (TABLETS) [Concomitant]
  10. ZOMETA [Concomitant]
  11. VITAMIN C (ASCORBIC ACID) (TABLETS) [Concomitant]

REACTIONS (6)
  - INFUSION RELATED REACTION [None]
  - PLEURAL EFFUSION [None]
  - REFUSAL OF TREATMENT BY PATIENT [None]
  - PROSTATE CANCER METASTATIC [None]
  - DISEASE PROGRESSION [None]
  - BACTERIAL TEST POSITIVE [None]
